FAERS Safety Report 17697656 (Version 2)
Quarter: 2020Q2

REPORT INFORMATION
  Report Type: Spontaneous
  Country: TW (occurrence: TW)
  Receive Date: 20200423
  Receipt Date: 20200521
  Transmission Date: 20200714
  Serious: Yes (Other)
  Sender: FDA-Public Use
  Company Number: TW-JNJFOC-20200419690

PATIENT
  Age: 61 Year
  Sex: Male
  Weight: 84.7 kg

DRUGS (6)
  1. STELARA [Suspect]
     Active Substance: USTEKINUMAB
     Indication: PSORIASIS
     Route: 058
     Dates: start: 20191203, end: 20191231
  2. STELARA [Suspect]
     Active Substance: USTEKINUMAB
     Route: 058
     Dates: start: 20200511
  3. XAMIOL                             /06356901/ [Concomitant]
     Active Substance: BETAMETHASONE DIPROPIONATE\CALCIPOTRIENE
     Indication: PSORIASIS
     Route: 065
     Dates: start: 20160718
  4. UREA. [Concomitant]
     Active Substance: UREA
  5. UREA. [Concomitant]
     Active Substance: UREA
     Indication: PSORIASIS
     Route: 065
     Dates: start: 20160718
  6. TOPSYM [Concomitant]
     Indication: PSORIASIS
     Route: 065
     Dates: start: 20160718

REACTIONS (1)
  - Transaminases increased [Recovered/Resolved]

NARRATIVE: CASE EVENT DATE: 20200327
